FAERS Safety Report 8942247 (Version 1)
Quarter: 2012Q4

REPORT INFORMATION
  Report Type: Spontaneous
  Country: US (occurrence: None)
  Receive Date: 20121129
  Receipt Date: 20121129
  Transmission Date: 20130627
  Serious: Yes (Other)
  Sender: FDA-Public Use
  Company Number: None

PATIENT
  Age: 37 Year
  Sex: Male
  Weight: 111.13 kg

DRUGS (1)
  1. AMPHETAMINE SALTS [Suspect]
     Indication: ADHD
     Dosage: 1    3/day   po
     Route: 048
     Dates: start: 20121116, end: 20121128

REACTIONS (4)
  - Drug ineffective [None]
  - Somnolence [None]
  - Depression [None]
  - Confusional state [None]
